FAERS Safety Report 16928063 (Version 3)
Quarter: 2019Q4

REPORT INFORMATION
  Report Type: Spontaneous
  Country: AU (occurrence: AU)
  Receive Date: 20191017
  Receipt Date: 20191129
  Transmission Date: 20200122
  Serious: Yes (Life-Threatening, Hospitalization, Other)
  Sender: FDA-Public Use
  Company Number: AU-STRIDES ARCOLAB LIMITED-2019SP010063

PATIENT
  Age: 77 Year
  Sex: Male

DRUGS (4)
  1. VANCOMYCIN [Suspect]
     Active Substance: VANCOMYCIN
     Indication: EVIDENCE BASED TREATMENT
  2. PREDNISOLONE. [Suspect]
     Active Substance: PREDNISOLONE
     Dosage: UNK, GRADUALLY WEANED OFF DURING FOLLOWING 9 MONTHS
     Route: 065
  3. VANCOMYCIN [Suspect]
     Active Substance: VANCOMYCIN
     Indication: ARTHRITIS INFECTIVE
     Dosage: UNK
     Route: 042
  4. PREDNISOLONE. [Suspect]
     Active Substance: PREDNISOLONE
     Indication: TUBULOINTERSTITIAL NEPHRITIS
     Dosage: 50 MG/DAY
     Route: 065

REACTIONS (16)
  - Acute kidney injury [Recovered/Resolved]
  - Lichenoid keratosis [Unknown]
  - Rash maculo-papular [Recovered/Resolved]
  - Rash erythematous [Recovered/Resolved]
  - Eosinophilia [Recovered/Resolved]
  - Anuria [Recovered/Resolved]
  - Malaise [Unknown]
  - Deep vein thrombosis [Unknown]
  - Tubulointerstitial nephritis [Recovered/Resolved]
  - Diarrhoea [Recovered/Resolved]
  - Pyrexia [Unknown]
  - Cytomegalovirus infection [Recovered/Resolved]
  - Bacterial infection [Unknown]
  - Leukocyturia [Unknown]
  - Drug reaction with eosinophilia and systemic symptoms [Recovered/Resolved]
  - Cytomegalovirus colitis [Recovered/Resolved]
